FAERS Safety Report 6638388-3 (Version None)
Quarter: 2010Q1

REPORT INFORMATION
  Report Type: 
  Country: None (occurrence: None)
  Receive Date: 20100317
  Receipt Date: 20100308
  Transmission Date: 20100710
  Serious: Yes (Hospitalization)
  Sender: FDA-Public Use
  Company Number: B0634748A

PATIENT
  Age: 85 Year
  Sex: Female
  Weight: 48 kg

DRUGS (12)
  1. ARIXTRA [Suspect]
     Indication: THROMBOSIS PROPHYLAXIS
     Dosage: 1.5MG PER DAY
     Route: 058
     Dates: start: 20081001, end: 20081014
  2. NSAID [Concomitant]
  3. AMLODIPINE [Concomitant]
     Dosage: 5MG PER DAY
     Route: 048
     Dates: start: 20080922, end: 20081112
  4. SALOBEL [Concomitant]
     Dosage: 50MG PER DAY
     Route: 048
     Dates: start: 20080922, end: 20081112
  5. ALDACTONE [Concomitant]
     Dosage: 60MG PER DAY
     Route: 048
     Dates: start: 20080922, end: 20081112
  6. CAPTOPRIL [Concomitant]
     Dosage: 50MG PER DAY
     Route: 048
     Dates: start: 20080922, end: 20081112
  7. FAMOTIDINE [Concomitant]
     Dosage: 10MG PER DAY
     Route: 048
     Dates: start: 20080922, end: 20081112
  8. GLYSENNID [Concomitant]
     Dosage: 12MG PER DAY
     Route: 048
     Dates: start: 20080922, end: 20081112
  9. DEPAS [Concomitant]
     Dosage: .5MG PER DAY
     Route: 048
     Dates: start: 20080922, end: 20081112
  10. PHENOBARBITAL TAB [Concomitant]
     Dosage: 120MG PER DAY
     Route: 048
     Dates: start: 20080922, end: 20081112
  11. RINDERON [Concomitant]
     Dosage: .5MG PER DAY
     Route: 048
     Dates: start: 20080922, end: 20081112
  12. NU-LOTAN [Concomitant]
     Dosage: 50MG PER DAY
     Route: 048
     Dates: start: 20080922, end: 20081112

REACTIONS (3)
  - C-REACTIVE PROTEIN INCREASED [None]
  - HAEMATOMA [None]
  - POST PROCEDURAL HAEMORRHAGE [None]
